FAERS Safety Report 5517912-8 (Version None)
Quarter: 2007Q4

REPORT INFORMATION
  Report Type: 
  Country: None (occurrence: None)
  Receive Date: 20071113
  Receipt Date: 20071106
  Transmission Date: 20080405
  Serious: Yes (Hospitalization)
  Sender: FDA-Public Use
  Company Number: 2007BI017069

PATIENT
  Age: 62 Year
  Sex: Female

DRUGS (8)
  1. NATALIZUMAB [Suspect]
     Indication: MULTIPLE SCLEROSIS
     Dosage: 300 MG;QM;IV
     Route: 042
     Dates: start: 20070123, end: 20070611
  2. NATALIZUMAB [Suspect]
     Indication: MULTIPLE SCLEROSIS
     Dosage: 300 MG;QM;IV
     Route: 042
     Dates: start: 20071011
  3. LUMINGAN [Concomitant]
  4. LISINOPRIL [Concomitant]
  5. GABAPENTIN [Concomitant]
  6. TEGRETOL [Concomitant]
  7. CRESTOR [Concomitant]
  8. NEURONTIN [Concomitant]

REACTIONS (13)
  - CONVULSION [None]
  - DEEP VEIN THROMBOSIS [None]
  - FAECAL INCONTINENCE [None]
  - GASTROINTESTINAL HAEMORRHAGE [None]
  - HAEMORRHAGE [None]
  - MULTIPLE SCLEROSIS [None]
  - MULTIPLE SCLEROSIS RELAPSE [None]
  - MYELITIS TRANSVERSE [None]
  - PROCTITIS [None]
  - PULMONARY EMBOLISM [None]
  - SALMONELLA BACTERAEMIA [None]
  - SALMONELLA SEPSIS [None]
  - URINARY INCONTINENCE [None]
